FAERS Safety Report 21092716 (Version 3)
Quarter: 2022Q3

REPORT INFORMATION
  Report Type: Report from Study
  Country: US (occurrence: US)
  Receive Date: 20220718
  Receipt Date: 20220926
  Transmission Date: 20221026
  Serious: Yes (Death, Other)
  Sender: FDA-Public Use
  Company Number: US-ABBVIE-22K-163-4471412-00

PATIENT
  Sex: Male

DRUGS (1)
  1. HUMIRA [Suspect]
     Active Substance: ADALIMUMAB
     Indication: Colitis ulcerative
     Dosage: CITRATE FREE
     Route: 058

REACTIONS (6)
  - Death [Fatal]
  - Neoplasm malignant [Unknown]
  - Throat cancer [Unknown]
  - Pyoderma [Unknown]
  - Gastrointestinal disorder [Unknown]
  - Colitis ulcerative [Unknown]
